FAERS Safety Report 8085060-1 (Version None)
Quarter: 2012Q1

REPORT INFORMATION
  Report Type: 
  Country: None (occurrence: None)
  Receive Date: 20120128
  Receipt Date: 20110328
  Transmission Date: 20120608
  Serious: No
  Sender: FDA-Public Use
  Company Number: US-ABBOTT-11P-163-0714766-00

PATIENT
  Age: 61 Year
  Sex: Female

DRUGS (4)
  1. HYDROCHLOROTHIAZIDE [Concomitant]
     Indication: PRODUCT USED FOR UNKNOWN INDICATION
  2. ENALAPRIL [Concomitant]
     Indication: PRODUCT USED FOR UNKNOWN INDICATION
  3. LIALDA [Concomitant]
     Indication: PRODUCT USED FOR UNKNOWN INDICATION
     Dosage: DOSE NOT GIVEN
  4. HUMIRA [Suspect]
     Indication: CROHN'S DISEASE
     Dates: start: 20110101

REACTIONS (1)
  - INJECTION SITE PAIN [None]
